FAERS Safety Report 17920094 (Version 1)
Quarter: 2020Q2

REPORT INFORMATION
  Report Type: Spontaneous
  Country: US (occurrence: US)
  Receive Date: 20200620
  Receipt Date: 20200620
  Transmission Date: 20200714
  Serious: Yes (Other)
  Sender: FDA-Public Use
  Company Number: US-PERRIGO-20US008403

PATIENT
  Age: 48 Year
  Sex: Male
  Weight: 83.9 kg

DRUGS (2)
  1. BACITRACIN ZINC 500 U/G 536 [Suspect]
     Active Substance: BACITRACIN ZINC
     Indication: SCRATCH
     Dosage: 1 APPLICATION, SINGLE
     Route: 061
     Dates: start: 20180718, end: 20180718
  2. BACITRACIN ZINC 500 U/G 536 [Suspect]
     Active Substance: BACITRACIN ZINC
     Indication: SCRATCH
     Dosage: 1 APPLICATION, SINGLE
     Route: 061
     Dates: start: 20200607, end: 20200607

REACTIONS (6)
  - Pruritus [Recovered/Resolved]
  - Thirst [Recovered/Resolved]
  - Erythema [Recovered/Resolved]
  - Urticaria [Recovered/Resolved]
  - Expired product administered [Recovered/Resolved]
  - Heart rate increased [Recovered/Resolved]

NARRATIVE: CASE EVENT DATE: 20200607
